FAERS Safety Report 7984687-2 (Version None)
Quarter: 2011Q4

REPORT INFORMATION
  Report Type: 
  Country: None (occurrence: None)
  Receive Date: 20111216
  Receipt Date: 20110916
  Transmission Date: 20120403
  Serious: No
  Sender: FDA-Public Use
  Company Number: US-GLAXOSMITHKLINE-A0945371A

PATIENT
  Age: 29 Year
  Sex: Male

DRUGS (3)
  1. CORTICOSTEROID [Concomitant]
  2. RITUXIMAB [Concomitant]
     Dates: start: 20110617, end: 20110708
  3. PROMACTA [Suspect]
     Indication: IDIOPATHIC THROMBOCYTOPENIC PURPURA
     Dosage: 75MG PER DAY
     Route: 048
     Dates: start: 20110914

REACTIONS (3)
  - RASH PAPULAR [None]
  - PRURITUS [None]
  - RASH [None]
